FAERS Safety Report 16543805 (Version 1)
Quarter: 2019Q3

REPORT INFORMATION
  Report Type: Spontaneous
  Country: US (occurrence: US)
  Receive Date: 20190709
  Receipt Date: 20190709
  Transmission Date: 20191004
  Serious: Yes (Hospitalization)
  Sender: FDA-Public Use
  Company Number: US-PFIZER INC-2019287410

PATIENT
  Age: 71 Year
  Sex: Male
  Weight: 78.5 kg

DRUGS (2)
  1. VFEND [Suspect]
     Active Substance: VORICONAZOLE
     Dosage: 300 MG, 2X/DAY
     Route: 048
     Dates: start: 20190617
  2. VFEND [Suspect]
     Active Substance: VORICONAZOLE
     Dosage: 350 MG, 2X/DAY
     Route: 048

REACTIONS (1)
  - Neoplasm recurrence [Recovering/Resolving]

NARRATIVE: CASE EVENT DATE: 20190524
